FAERS Safety Report 6942286-5 (Version None)
Quarter: 2010Q3

REPORT INFORMATION
  Report Type: 
  Country: None (occurrence: None)
  Receive Date: 20100820
  Receipt Date: 20100818
  Transmission Date: 20110219
  Serious: Yes (Hospitalization)
  Sender: FDA-Public Use
  Company Number: KV201000269

PATIENT
  Age: 52 Year
  Sex: Female

DRUGS (8)
  1. DILTIAZEM HCL [Suspect]
     Indication: HYPERTENSION
     Dosage: 180 MG, QD, ORAL
     Route: 048
  2. METOPROLOL SUCCINATE [Suspect]
     Indication: HYPERTENSION
     Dosage: 200 MG, BID, ORAL
     Route: 048
  3. METOPROLOL SUCCINATE [Suspect]
     Indication: HYPERTENSION
     Dosage: 100 MG, TWICE, ORAL
     Route: 048
  4. CLONIDINE [Suspect]
     Indication: HYPERTENSION
     Dosage: 0.2 MG, TID, ORAL : 0.2 MG, SINGLE, ORAL : 0.1 MG, SINGLE, ORAL
     Route: 048
  5. LABETALOL HCL [Suspect]
     Indication: HYPERTENSION
     Dosage: 20 MG, SINGLE, INTRAVENOUS
     Route: 042
  6. NIFEDIPINE [Suspect]
     Indication: HYPERTENSION
     Dosage: 60 MG, SINGLE, ORAL
     Route: 048
  7. HYDRALAZINE HCL [Suspect]
     Indication: HYPERTENSION
  8. LOPINAVIR/RITONAVIR [Suspect]
     Indication: HIV INFECTION
     Dosage: 200 MG, BID, ORAL
     Route: 048

REACTIONS (8)
  - ACCIDENTAL OVERDOSE [None]
  - ARRHYTHMIA [None]
  - CONFUSIONAL STATE [None]
  - DEPRESSED LEVEL OF CONSCIOUSNESS [None]
  - DRUG INEFFECTIVE [None]
  - DRUG INTERACTION [None]
  - HYPERTENSION [None]
  - HYPOTENSION [None]
